FAERS Safety Report 8846103 (Version 1)
Quarter: 2012Q4

REPORT INFORMATION
  Report Type: 
  Country: US (occurrence: US)
  Receive Date: 20121017
  Receipt Date: 20121017
  Transmission Date: 20130627
  Serious: No
  Sender: FDA-Public Use
  Company Number: US-009507513-1210USA001497

PATIENT

DRUGS (2)
  1. AZASITE [Suspect]
     Dosage: 2 Gtt, qam
     Route: 047
     Dates: start: 20120930, end: 20120930
  2. AZASITE [Suspect]
     Dosage: 1 Gtt, in the morning and night
     Route: 047
     Dates: start: 20121001

REACTIONS (3)
  - Product packaging quantity issue [Unknown]
  - Drug dose omission [Unknown]
  - No adverse event [Unknown]
